FAERS Safety Report 4778837-9 (Version None)
Quarter: 2005Q3

REPORT INFORMATION
  Report Type: 
  Country: None (occurrence: None)
  Receive Date: 20050922
  Receipt Date: 20050914
  Transmission Date: 20060218
  Serious: Yes (Life-Threatening, Hospitalization)
  Sender: FDA-Public Use
  Company Number: TH-2005-019111

PATIENT
  Age: 80 Year
  Sex: Male

DRUGS (2)
  1. ULTRAVIST 300 [Suspect]
     Indication: UROGRAPHY
     Dosage: SEE IMAGE
     Route: 042
     Dates: start: 20050901, end: 20050901
  2. ULTRAVIST 300 [Suspect]
     Indication: UROGRAPHY
     Dosage: SEE IMAGE
     Route: 042
     Dates: start: 20050913, end: 20050913

REACTIONS (6)
  - CHEST DISCOMFORT [None]
  - DYSPNOEA [None]
  - FEELING ABNORMAL [None]
  - MYOCARDIAL INFARCTION [None]
  - PROCEDURAL COMPLICATION [None]
  - PRURITUS [None]
